FAERS Safety Report 9485289 (Version 5)
Quarter: 2014Q2

REPORT INFORMATION
  Report Type: Spontaneous
  Country: DE (occurrence: DE)
  Receive Date: 20130828
  Receipt Date: 20140423
  Transmission Date: 20141212
  Serious: Yes (Death)
  Sender: FDA-Public Use
  Company Number: DE-ROCHE-1247134

PATIENT
  Age: 64 Year
  Sex: Female
  Weight: 93 kg

DRUGS (9)
  1. MABTHERA [Suspect]
     Indication: MICROSCOPIC POLYANGIITIS
     Route: 042
     Dates: start: 20130126, end: 20130222
  2. MABTHERA [Suspect]
     Indication: RENAL FAILURE CHRONIC
  3. SOLU-DECORTIN [Concomitant]
     Indication: MICROSCOPIC POLYANGIITIS
     Route: 042
     Dates: start: 20130124, end: 20130126
  4. AMLODIPIN [Concomitant]
     Indication: HYPERTENSION
     Route: 048
  5. PHYSIOTENS [Concomitant]
     Indication: HYPERTENSION
  6. TOREM [Concomitant]
     Indication: RENAL FAILURE CHRONIC
     Route: 048
  7. LYRICA [Concomitant]
     Route: 048
  8. CAPTOPRIL [Concomitant]
     Route: 048
  9. CALCIGEN D [Concomitant]
     Indication: OSTEOPOROSIS PROPHYLAXIS
     Route: 065

REACTIONS (3)
  - Pneumonia cytomegaloviral [Fatal]
  - Bronchopulmonary aspergillosis [Fatal]
  - Multi-organ failure [Fatal]
